FAERS Safety Report 9580378 (Version 1)
Quarter: 2013Q3

REPORT INFORMATION
  Report Type: Spontaneous
  Country: US (occurrence: None)
  Receive Date: 20130916
  Receipt Date: 20130916
  Transmission Date: 20140515
  Serious: Yes (Other)
  Sender: FDA-Public Use
  Company Number: JPI-P-029226

PATIENT
  Age: 49 Year
  Sex: Female
  Weight: 63.05 kg

DRUGS (2)
  1. XYREM [Suspect]
     Indication: CATAPLEXY
     Route: 048
     Dates: start: 201207
  2. ESTRADIOL [Concomitant]

REACTIONS (6)
  - Weight decreased [None]
  - Tachycardia [None]
  - Sensation of foreign body [None]
  - Throat irritation [None]
  - Dry throat [None]
  - Decreased appetite [None]
